FAERS Safety Report 17293826 (Version 1)
Quarter: 2020Q1

REPORT INFORMATION
  Report Type: Spontaneous
  Country: US (occurrence: US)
  Receive Date: 20200102
  Receipt Date: 20200102
  Transmission Date: 20200409
  Serious: Yes (Hospitalization)
  Sender: FDA-Public Use
  Company Number: None

PATIENT
  Sex: Male

DRUGS (12)
  1. ACETAMIN [Concomitant]
     Active Substance: ACETAMINOPHEN
  2. AQUADEK [Concomitant]
  3. CREON [Concomitant]
     Active Substance: PANCRELIPASE AMYLASE\PANCRELIPASE LIPASE\PANCRELIPASE PROTEASE
  4. ERGOCALCIFEROL. [Concomitant]
     Active Substance: ERGOCALCIFEROL
  5. PULMOZYME [Suspect]
     Active Substance: DORNASE ALFA
     Indication: CYSTIC FIBROSIS
     Dosage: ?          OTHER DOSE:1 VIAL;?
     Route: 055
     Dates: start: 20191202
  6. RANITIDINE. [Concomitant]
     Active Substance: RANITIDINE
  7. SOD CHL [Concomitant]
     Active Substance: SODIUM CHLORIDE
  8. FAMOTIDINE. [Concomitant]
     Active Substance: FAMOTIDINE
  9. ALBUTEROL. [Concomitant]
     Active Substance: ALBUTEROL
  10. POLYETHY GLYC [Concomitant]
  11. LACTULOSE. [Concomitant]
     Active Substance: LACTULOSE
  12. FERROUS SULF [Concomitant]
     Active Substance: FERROUS SULFATE

REACTIONS (1)
  - Feeding intolerance [None]
